FAERS Safety Report 9813507 (Version 1)
Quarter: 2014Q1

REPORT INFORMATION
  Report Type: Spontaneous
  Country: US (occurrence: None)
  Receive Date: 20140109
  Receipt Date: 20140109
  Transmission Date: 20141002
  Serious: Yes (Hospitalization)
  Sender: FDA-Public Use
  Company Number: None

PATIENT
  Age: 62 Year
  Sex: Female
  Weight: 72 kg

DRUGS (10)
  1. CABOZANTINIB [Suspect]
     Indication: BREAST CANCER
     Route: 048
     Dates: start: 20130822, end: 20131121
  2. CALTRATE [Concomitant]
  3. DIOVAN [Concomitant]
  4. LIPITOR [Concomitant]
  5. MICRO-K [Concomitant]
  6. MULTIVITAMIN [Concomitant]
  7. NORVASC [Concomitant]
  8. OMEGA-3 [Concomitant]
  9. PHOS-NEUTRAL [Concomitant]
  10. OMEPRAZOLE [Concomitant]

REACTIONS (6)
  - Rash [None]
  - Asthenia [None]
  - Dysgeusia [None]
  - Dysphonia [None]
  - Pleural effusion [None]
  - Oedema peripheral [None]
